FAERS Safety Report 9353539 (Version 1)
Quarter: 2013Q2

REPORT INFORMATION
  Report Type: Spontaneous
  Country: US (occurrence: None)
  Receive Date: 20130617
  Receipt Date: 20130617
  Transmission Date: 20140414
  Serious: Yes (Hospitalization)
  Sender: FDA-Public Use
  Company Number: None

PATIENT
  Age: 72 None
  Sex: Female

DRUGS (2)
  1. TARCEVA [Suspect]
     Indication: TRACHEAL CANCER
     Dosage: TO PRESENT 150 MG ONCE DAILY ORAL
     Route: 048
     Dates: start: 20130514
  2. TARCEVA [Suspect]
     Indication: LUNG NEOPLASM MALIGNANT
     Dosage: TO PRESENT 150 MG ONCE DAILY ORAL
     Route: 048
     Dates: start: 20130514

REACTIONS (2)
  - Rash [None]
  - Oedema peripheral [None]
